FAERS Safety Report 5142391-2 (Version None)
Quarter: 2006Q4

REPORT INFORMATION
  Report Type: 
  Country: None (occurrence: None)
  Receive Date: 20061102
  Receipt Date: 20061026
  Transmission Date: 20070319
  Serious: Yes (Life-Threatening, Other)
  Sender: FDA-Public Use
  Company Number: BR-JNJFOC-20061006815

PATIENT
  Age: 33 Year
  Sex: Female
  Weight: 65 kg

DRUGS (4)
  1. HALDOL [Suspect]
     Indication: SUICIDE ATTEMPT
     Route: 048
  2. PHENOBARBITAL TAB [Suspect]
     Indication: SUICIDE ATTEMPT
     Route: 048
  3. DIAZEPAM [Suspect]
     Indication: SUICIDE ATTEMPT
     Route: 048
  4. AMITRIPTYLINE HCL [Suspect]
     Indication: SUICIDE ATTEMPT
     Route: 048

REACTIONS (3)
  - LOSS OF CONSCIOUSNESS [None]
  - MULTIPLE DRUG OVERDOSE [None]
  - SUICIDE ATTEMPT [None]
